FAERS Safety Report 13995282 (Version 1)
Quarter: 2017Q3

REPORT INFORMATION
  Report Type: Spontaneous
  Country: AU (occurrence: AU)
  Receive Date: 20170921
  Receipt Date: 20170921
  Transmission Date: 20171128
  Serious: Yes (Disabling)
  Sender: FDA-Public Use
  Company Number: AU-AMGEN-AUSSP2017140957

PATIENT
  Age: 76 Year
  Sex: Female

DRUGS (8)
  1. METHOTREXATE. [Concomitant]
     Active Substance: METHOTREXATE
  2. PANADOL [Concomitant]
     Active Substance: ACETAMINOPHEN
  3. CALCIUM [Concomitant]
     Active Substance: CALCIUM
  4. PROLIA [Suspect]
     Active Substance: DENOSUMAB
     Indication: OSTEOARTHRITIS
     Dosage: 60 MG, UNK
     Route: 065
  5. BISOPROLOL [Concomitant]
     Active Substance: BISOPROLOL
  6. MEGAFOL [Concomitant]
     Active Substance: FOLIC ACID
  7. PREDNISOLONE. [Concomitant]
     Active Substance: PREDNISOLONE
  8. VITAMIN D [Concomitant]
     Active Substance: CHOLECALCIFEROL

REACTIONS (1)
  - Mouth ulceration [Recovered/Resolved]

NARRATIVE: CASE EVENT DATE: 20160601
